FAERS Safety Report 6242456-8 (Version None)
Quarter: 2009Q2

REPORT INFORMATION
  Report Type: 
  Country: None (occurrence: None)
  Receive Date: 20090622
  Receipt Date: 20090622
  Transmission Date: 20091009
  Serious: Yes (Hospitalization, Other)
  Sender: FDA-Public Use
  Company Number: None

PATIENT
  Age: 70 Year
  Sex: Female
  Weight: 52.6173 kg

DRUGS (2)
  1. SERTRALINE [Suspect]
     Indication: DEPRESSION
     Dosage: ONE TABLET EVERY DAY PO
     Route: 048
     Dates: start: 20090301, end: 20090501
  2. SERTRALINE [Suspect]
     Indication: INSOMNIA
     Dosage: ONE TABLET EVERY DAY PO
     Route: 048
     Dates: start: 20090301, end: 20090501

REACTIONS (6)
  - ASTHENIA [None]
  - DEHYDRATION [None]
  - DIARRHOEA [None]
  - DRUG INEFFECTIVE [None]
  - TREMOR [None]
  - WEIGHT DECREASED [None]
